FAERS Safety Report 9268626 (Version 2)
Quarter: 2013Q2

REPORT INFORMATION
  Report Type: Spontaneous
  Country: US (occurrence: US)
  Receive Date: 20130502
  Receipt Date: 20130624
  Transmission Date: 20140414
  Serious: Yes (Hospitalization)
  Sender: FDA-Public Use
  Company Number: US-B.I. PHARMACEUTICALS,INC./RIDGEFIELD-2013-BI-12010BP

PATIENT
  Age: 67 Year
  Sex: Male
  Weight: 78.02 kg

DRUGS (14)
  1. PRADAXA [Suspect]
     Indication: ANTICOAGULANT THERAPY
     Dates: start: 20110427, end: 20110501
  2. GLUCOTROL [Concomitant]
  3. GLUCOPHAGE [Concomitant]
  4. DIOVAN [Concomitant]
  5. ISOSORBIDE DINITRATE [Concomitant]
     Dosage: 120 MG
  6. GEMFIBROZIL [Concomitant]
  7. HYDRALAZINE [Concomitant]
  8. AMLODIPINE [Concomitant]
  9. ASPIRIN [Concomitant]
     Dosage: 81 MG
  10. KAYEXALATE [Concomitant]
  11. LYRICA [Concomitant]
  12. ULTRAM [Concomitant]
  13. LEVEMIR [Concomitant]
     Dosage: 50 MG
  14. GLYBURIDE [Concomitant]
     Dosage: 20 MG

REACTIONS (4)
  - Rectal haemorrhage [Unknown]
  - Haemorrhagic anaemia [Unknown]
  - Acute myocardial infarction [Unknown]
  - Haematemesis [Unknown]
